FAERS Safety Report 10356249 (Version 1)
Quarter: 2014Q3

REPORT INFORMATION
  Report Type: Spontaneous
  Country: US (occurrence: US)
  Receive Date: 20140801
  Receipt Date: 20140801
  Transmission Date: 20150326
  Serious: Yes (Hospitalization)
  Sender: FDA-Public Use
  Company Number: US-BRISTOL-MYERS SQUIBB COMPANY-21238738

PATIENT
  Age: 79 Year
  Sex: Female
  Weight: 74.83 kg

DRUGS (2)
  1. COUMADIN [Suspect]
     Active Substance: WARFARIN SODIUM
  2. CRESTOR [Concomitant]
     Active Substance: ROSUVASTATIN CALCIUM

REACTIONS (6)
  - Stent placement [Unknown]
  - Laryngeal cancer [Unknown]
  - Drug ineffective [Unknown]
  - Rib fracture [Unknown]
  - International normalised ratio fluctuation [Unknown]
  - Dental operation [Unknown]
